FAERS Safety Report 9443409 (Version 2)
Quarter: 2013Q3

REPORT INFORMATION
  Report Type: Spontaneous
  Country: GB (occurrence: GB)
  Receive Date: 20130806
  Receipt Date: 20130809
  Transmission Date: 20140515
  Serious: Yes (Other)
  Sender: FDA-Public Use
  Company Number: PHFR2013GB004468

PATIENT
  Sex: Male

DRUGS (2)
  1. CLOZARIL [Suspect]
     Indication: SCHIZOPHRENIA
     Dosage: UNK
     Route: 048
     Dates: start: 20130716
  2. CLOZARIL [Suspect]
     Dosage: 275 MG, OD
     Dates: end: 20130802

REACTIONS (2)
  - Myocarditis [Unknown]
  - Body temperature increased [Unknown]
